FAERS Safety Report 12593506 (Version 1)
Quarter: 2016Q3

REPORT INFORMATION
  Report Type: Spontaneous
  Country: US (occurrence: US)
  Receive Date: 20160726
  Receipt Date: 20160726
  Transmission Date: 20161109
  Serious: No
  Sender: FDA-Public Use
  Company Number: US-ABBVIE-15P-163-1467009-00

PATIENT
  Age: 79 Year
  Sex: Female
  Weight: 63.56 kg

DRUGS (6)
  1. SYNTHROID [Suspect]
     Active Substance: LEVOTHYROXINE SODIUM
     Indication: AUTOIMMUNE THYROIDITIS
     Dosage: IN THE MORNING
     Route: 048
     Dates: start: 2013, end: 20150907
  2. CYTOMEL [Suspect]
     Active Substance: LIOTHYRONINE SODIUM
     Indication: THYROID HORMONE REPLACEMENT THERAPY
     Dosage: IN THE MORNING UPC # 6605374601
     Route: 048
     Dates: start: 2013, end: 20150907
  3. LEVOTHYROXINE. [Suspect]
     Active Substance: LEVOTHYROXINE
     Indication: AUTOIMMUNE THYROIDITIS
     Dosage: UPC NUMBER:5672564401
     Route: 065
     Dates: start: 20150907
  4. LIOTHYRONINE [Suspect]
     Active Substance: LIOTHYRONINE
     Indication: AUTOIMMUNE THYROIDITIS
     Dosage: IN THE MORNING   UPC NUMBER: 5168798801
     Route: 048
     Dates: start: 20150907
  5. NUTRIENT 950 [Suspect]
     Active Substance: MINERALS\VITAMINS
     Indication: VITAMIN SUPPLEMENTATION
     Dosage: 3 IN THE MONRNING AND 3 AT NOON   UPC NUMBER: 766298002071
     Route: 065
     Dates: end: 201505
  6. TIROSINT [Suspect]
     Active Substance: LEVOTHYROXINE SODIUM
     Indication: PRODUCT USED FOR UNKNOWN INDICATION
     Route: 065
     Dates: start: 20150910, end: 20150910

REACTIONS (16)
  - Feeling abnormal [Recovering/Resolving]
  - Withdrawal syndrome [None]
  - Diarrhoea [Recovered/Resolved]
  - Nausea [Recovered/Resolved]
  - Myalgia [Recovering/Resolving]
  - Gastrooesophageal reflux disease [Recovering/Resolving]
  - Headache [Recovering/Resolving]
  - Feeling cold [Recovered/Resolved]
  - Arthralgia [Recovering/Resolving]
  - Drug administration error [Recovering/Resolving]
  - Alopecia [Recovering/Resolving]
  - Toxicity to various agents [Recovering/Resolving]
  - Frequent bowel movements [Recovered/Resolved]
  - Drug withdrawal headache [Recovered/Resolved]
  - Fatigue [Recovered/Resolved]
  - Hypersomnia [None]

NARRATIVE: CASE EVENT DATE: 2013
